FAERS Safety Report 16706703 (Version 1)
Quarter: 2019Q3

REPORT INFORMATION
  Report Type: Spontaneous
  Country: JP (occurrence: JP)
  Receive Date: 20190815
  Receipt Date: 20190815
  Transmission Date: 20191004
  Serious: Yes (Other)
  Sender: FDA-Public Use
  Company Number: JP-ASTRAZENECA-2019SF14717

PATIENT
  Age: 71 Year
  Sex: Male

DRUGS (2)
  1. FORXIGA [Suspect]
     Active Substance: DAPAGLIFLOZIN
     Dosage: DOSE UNKNOWN
     Route: 048
  2. GLACTIV [Concomitant]
     Active Substance: SITAGLIPTIN
     Indication: ENZYME ABNORMALITY
     Dosage: DOSE UNKNOWN
     Route: 065

REACTIONS (3)
  - Weight decreased [Unknown]
  - Localised infection [Unknown]
  - Toe amputation [Unknown]
